FAERS Safety Report 7226157-5 (Version None)
Quarter: 2011Q1

REPORT INFORMATION
  Report Type: 
  Country: None (occurrence: None)
  Receive Date: 20110114
  Receipt Date: 20110105
  Transmission Date: 20110831
  Serious: Yes (Hospitalization)
  Sender: FDA-Public Use
  Company Number: DE-BIOGENIDEC-2011BI000389

PATIENT
  Age: 28 Year
  Sex: Female
  Weight: 54 kg

DRUGS (4)
  1. AVONEX [Suspect]
     Indication: RELAPSING-REMITTING MULTIPLE SCLEROSIS
     Dates: start: 20020101, end: 20100301
  2. AVONEX [Suspect]
     Dates: start: 20100401, end: 20101001
  3. AVONEX [Suspect]
     Dates: start: 20101201
  4. IBUPROFEN [Concomitant]
     Indication: PROPHYLAXIS
     Dates: start: 20040101

REACTIONS (1)
  - ECTOPIC PREGNANCY [None]
